FAERS Safety Report 22035017 (Version 1)
Quarter: 2023Q1

REPORT INFORMATION
  Report Type: Spontaneous
  Country: US (occurrence: None)
  Receive Date: 20230222
  Receipt Date: 20230222
  Transmission Date: 20230418
  Serious: No
  Sender: FDA-Public Use
  Company Number: None

PATIENT
  Sex: Male

DRUGS (1)
  1. ICATIBANT ACETATE [Suspect]
     Active Substance: ICATIBANT ACETATE
     Indication: Complement deficiency disease
     Route: 058
     Dates: start: 202109

REACTIONS (5)
  - Gastritis [None]
  - Oropharyngeal discomfort [None]
  - Pulmonary oedema [None]
  - Drug ineffective [None]
  - Prophylaxis [None]
